FAERS Safety Report 17250226 (Version 2)
Quarter: 2021Q2

REPORT INFORMATION
  Report Type: Report from Study
  Country: US (occurrence: US)
  Receive Date: 20200109
  Receipt Date: 20210422
  Transmission Date: 20210716
  Serious: Yes (Hospitalization, Other)
  Sender: FDA-Public Use
  Company Number: US-EMD SERONO-9138678

PATIENT
  Age: 73 Year
  Sex: Female

DRUGS (1)
  1. REBIF [Suspect]
     Active Substance: INTERFERON BETA-1A
     Indication: PRODUCT USED FOR UNKNOWN INDICATION
     Route: 058
     Dates: start: 20150320, end: 202012

REACTIONS (7)
  - Injury [Unknown]
  - Dizziness [Unknown]
  - Cervical vertebral fracture [Unknown]
  - Cardiac failure [Unknown]
  - Fall [Unknown]
  - Pulmonary hypertension [Unknown]
  - Peripheral swelling [Unknown]

NARRATIVE: CASE EVENT DATE: 2021
